APPROVED DRUG PRODUCT: QUVIVIQ
Active Ingredient: DARIDOREXANT HYDROCHLORIDE
Strength: EQ 50MG BASE
Dosage Form/Route: TABLET;ORAL
Application: N214985 | Product #002
Applicant: IDORSIA PHARMACEUTICALS LTD
Approved: Apr 7, 2022 | RLD: Yes | RS: Yes | Type: RX

PATENTS:
Patent 9732075 | Expires: Jun 12, 2033
Patent 10023560 | Expires: Dec 2, 2034
Patent 9790208 | Expires: Dec 2, 2034

EXCLUSIVITY:
Code: M-200 | Date: Sep 30, 2027
Code: M-310 | Date: Sep 30, 2027
Code: NCE | Date: Apr 7, 2027